FAERS Safety Report 7413259-3 (Version None)
Quarter: 2011Q2

REPORT INFORMATION
  Report Type: 
  Country: None (occurrence: None)
  Receive Date: 20110413
  Receipt Date: 20110408
  Transmission Date: 20111010
  Serious: Yes (Hospitalization)
  Sender: FDA-Public Use
  Company Number: AT-PFIZER INC-2011077777

PATIENT
  Age: 70 Year
  Sex: Female

DRUGS (1)
  1. TAZONAM [Suspect]
     Indication: INFECTION
     Dosage: 4.0/5.0 G, TWICE
     Route: 042

REACTIONS (2)
  - CHEST DISCOMFORT [None]
  - GENERALISED ERYTHEMA [None]
